FAERS Safety Report 19625943 (Version 2)
Quarter: 2021Q3

REPORT INFORMATION
  Report Type: Report from Study
  Country: JP (occurrence: JP)
  Receive Date: 20210728
  Receipt Date: 20210928
  Transmission Date: 20211014
  Serious: Yes (Death, Other)
  Sender: FDA-Public Use
  Company Number: JP-UCBSA-2021036050

PATIENT
  Sex: Male
  Weight: 87.2 kg

DRUGS (13)
  1. FYCOMPA [Concomitant]
     Active Substance: PERAMPANEL
     Indication: SIMPLE PARTIAL SEIZURES
     Dosage: 8 MILLIGRAM, ONCE DAILY (QD)
     Route: 048
  2. E KEPPRA [Concomitant]
     Active Substance: LEVETIRACETAM
     Indication: PARTIAL SEIZURES WITH SECONDARY GENERALISATION
  3. LACOSAMIDE. [Suspect]
     Active Substance: LACOSAMIDE
     Dosage: 200 MILLIGRAM, 2X/DAY (BID)
     Route: 048
     Dates: start: 20200713, end: 20210830
  4. PICOSULFATE NA [Concomitant]
     Active Substance: SODIUM PICOSULFATE
     Indication: PROPHYLAXIS
     Dosage: UNK
     Dates: start: 20200615, end: 20200615
  5. LACOSAMIDE. [Suspect]
     Active Substance: LACOSAMIDE
     Indication: SIMPLE PARTIAL SEIZURES
     Dosage: 50 MILLIGRAM, 2X/DAY (BID)
     Route: 048
     Dates: start: 20200323
  6. NASEA [Concomitant]
     Active Substance: RAMOSETRON HYDROCHLORIDE
     Indication: PRODUCT USED FOR UNKNOWN INDICATION
     Dosage: 0.1 MILLIGRAM, ONCE DAILY (QD)
     Route: 048
  7. FYCOMPA [Concomitant]
     Active Substance: PERAMPANEL
     Indication: PARTIAL SEIZURES WITH SECONDARY GENERALISATION
     Dosage: 2 MILLIGRAM, ONCE DAILY (QD)
     Route: 048
     Dates: start: 20201012
  8. MAGNESIUM OXIDE. [Concomitant]
     Active Substance: MAGNESIUM OXIDE
     Indication: PROPHYLAXIS
     Dosage: 500MG EVERY 8 HOURS
     Route: 048
     Dates: start: 20200713, end: 20200816
  9. LACOSAMIDE. [Suspect]
     Active Substance: LACOSAMIDE
     Dosage: 125 MILLIGRAM, 2X/DAY (BID)
     Route: 048
     Dates: start: 20200518
  10. LACOSAMIDE. [Suspect]
     Active Substance: LACOSAMIDE
     Dosage: 150 MILLIGRAM, 2X/DAY (BID)
     Route: 048
     Dates: start: 20200615
  11. TEMOZOLOMIDE. [Concomitant]
     Active Substance: TEMOZOLOMIDE
     Indication: PRODUCT USED FOR UNKNOWN INDICATION
     Dosage: 380 MILLIGRAM, ONCE DAILY (QD)
     Route: 048
  12. E KEPPRA [Concomitant]
     Active Substance: LEVETIRACETAM
     Indication: SIMPLE PARTIAL SEIZURES
     Dosage: 500MG
     Route: 048
     Dates: start: 20201118
  13. LACOSAMIDE. [Suspect]
     Active Substance: LACOSAMIDE
     Indication: PARTIAL SEIZURES WITH SECONDARY GENERALISATION
     Dosage: 100 MILLIGRAM, 2X/DAY (BID)
     Route: 048
     Dates: start: 20200420

REACTIONS (1)
  - Anaplastic astrocytoma [Fatal]

NARRATIVE: CASE EVENT DATE: 20210127
